FAERS Safety Report 7007142-5 (Version None)
Quarter: 2010Q3

REPORT INFORMATION
  Report Type: 
  Country: None (occurrence: None)
  Receive Date: 20100922
  Receipt Date: 20100916
  Transmission Date: 20110219
  Serious: Yes (Other)
  Sender: FDA-Public Use
  Company Number: AT-BRISTOL-MYERS SQUIBB COMPANY-15277056

PATIENT
  Age: 63 Year
  Sex: Male
  Weight: 85 kg

DRUGS (7)
  1. ONGLYZA [Suspect]
     Indication: DIABETES MELLITUS
     Dosage: EVENT OCCUERED AFTER 2 WEEKS OF ONGLYZA THERAPY
     Dates: start: 20100810, end: 20100813
  2. CO-DILATREND [Concomitant]
  3. DILATREND [Concomitant]
     Dosage: 25 UNITS NOS
  4. LASIX [Concomitant]
     Dosage: 40 UNITS NOS
  5. DIAMICRON [Concomitant]
  6. CALVITA [Concomitant]
  7. ALDACTONE [Concomitant]

REACTIONS (1)
  - SCROTAL DISORDER [None]
